FAERS Safety Report 6834443-3 (Version None)
Quarter: 2010Q3

REPORT INFORMATION
  Report Type: 
  Country: None (occurrence: None)
  Receive Date: 20100712
  Receipt Date: 20070420
  Transmission Date: 20110219
  Serious: No
  Sender: FDA-Public Use
  Company Number: US-PFIZER INC-2007033416

PATIENT
  Sex: Female
  Weight: 47.17 kg

DRUGS (3)
  1. CHANTIX [Suspect]
     Indication: SMOKING CESSATION THERAPY
     Route: 048
     Dates: start: 20070101
  2. CLARITIN [Concomitant]
  3. PRILOSEC [Concomitant]

REACTIONS (2)
  - AGITATION [None]
  - HEART RATE INCREASED [None]
